FAERS Safety Report 7162642-2 (Version None)
Quarter: 2010Q4

REPORT INFORMATION
  Report Type: 
  Country: None (occurrence: None)
  Receive Date: 20101215
  Receipt Date: 20101213
  Transmission Date: 20110411
  Serious: Yes (Hospitalization)
  Sender: FDA-Public Use
  Company Number: ES-PFIZER INC-2010169802

PATIENT
  Age: 74 Year
  Sex: Male

DRUGS (1)
  1. SUNITINIB MALATE [Suspect]
     Indication: RENAL CELL CARCINOMA
     Dosage: 50 MG, 1X/DAY
     Route: 048
     Dates: start: 20090109, end: 20100109

REACTIONS (5)
  - HYPOTHYROIDISM [None]
  - JAUNDICE [None]
  - LIVER DISORDER [None]
  - OESOPHAGEAL VARICES HAEMORRHAGE [None]
  - PORTAL HYPERTENSION [None]
